FAERS Safety Report 7365553-2 (Version None)
Quarter: 2011Q1

REPORT INFORMATION
  Report Type: 
  Country: None (occurrence: None)
  Receive Date: 20110322
  Receipt Date: 20100915
  Transmission Date: 20110831
  Serious: Yes (Hospitalization, Other)
  Sender: FDA-Public Use
  Company Number: US-BAYER-201028684NA

PATIENT
  Sex: Female
  Weight: 102 kg

DRUGS (2)
  1. ZOLOFT [Concomitant]
     Indication: ANXIETY
     Dates: start: 20091123
  2. YAZ [Suspect]
     Indication: PAIN
     Route: 048
     Dates: start: 20080101, end: 20100115

REACTIONS (7)
  - CHOLECYSTITIS [None]
  - ABDOMINAL PAIN [None]
  - VOMITING [None]
  - ABDOMINAL PAIN UPPER [None]
  - CHOLELITHIASIS [None]
  - NAUSEA [None]
  - CHEST PAIN [None]
